FAERS Safety Report 14871444 (Version 4)
Quarter: 2019Q3

REPORT INFORMATION
  Report Type: Spontaneous
  Country: US (occurrence: US)
  Receive Date: 20180509
  Receipt Date: 20190719
  Transmission Date: 20191004
  Serious: Yes (Other)
  Sender: FDA-Public Use
  Company Number: US-ASTRAZENECA-2018SE54225

PATIENT
  Age: 60 Year
  Sex: Male
  Weight: 78.5 kg

DRUGS (56)
  1. ACIPHEX [Suspect]
     Active Substance: RABEPRAZOLE SODIUM
     Indication: GASTROOESOPHAGEAL REFLUX DISEASE
     Route: 048
     Dates: start: 20041002
  2. INDOCID [Concomitant]
     Active Substance: INDOMETHACIN
  3. IBUPROFEN. [Concomitant]
     Active Substance: IBUPROFEN
  4. ZANTAC [Concomitant]
     Active Substance: RANITIDINE HYDROCHLORIDE
  5. PREVACID [Suspect]
     Active Substance: LANSOPRAZOLE
     Indication: GASTROOESOPHAGEAL REFLUX DISEASE
     Route: 065
     Dates: start: 2006, end: 2015
  6. VIOXX [Concomitant]
     Active Substance: ROFECOXIB
  7. DURICEF [Concomitant]
     Active Substance: CEFADROXIL
  8. KEFLEX [Concomitant]
     Active Substance: CEPHALEXIN
  9. LEVAQUIN [Concomitant]
     Active Substance: LEVOFLOXACIN
     Dates: start: 20070824, end: 20150105
  10. STREPTOMYCIN [Concomitant]
     Active Substance: STREPTOMYCIN SULFATE
  11. TOBREX [Concomitant]
     Active Substance: TOBRAMYCIN
  12. VASOTEC [Concomitant]
     Active Substance: ENALAPRIL MALEATE
  13. ROLAIDS [Concomitant]
     Active Substance: CALCIUM CARBONATE\MAGNESIUM HYDROXIDE
  14. NEXIUM 24HR [Suspect]
     Active Substance: ESOMEPRAZOLE MAGNESIUM
     Route: 048
     Dates: start: 2006, end: 2015
  15. ACIPHEX [Suspect]
     Active Substance: RABEPRAZOLE SODIUM
     Indication: GASTROOESOPHAGEAL REFLUX DISEASE
     Route: 065
     Dates: start: 2006, end: 2015
  16. QUININE [Concomitant]
     Active Substance: QUININE
  17. MOBIC [Concomitant]
     Active Substance: MELOXICAM
  18. NUMORPHAN [Concomitant]
     Active Substance: OXYMORPHONE HYDROCHLORIDE
  19. CEFTIN [Concomitant]
     Active Substance: CEFUROXIME AXETIL
  20. CIPRO [Concomitant]
     Active Substance: CIPROFLOXACIN HYDROCHLORIDE
  21. DIOVAN [Concomitant]
     Active Substance: VALSARTAN
  22. NEXIUM [Suspect]
     Active Substance: ESOMEPRAZOLE MAGNESIUM
     Indication: GASTROOESOPHAGEAL REFLUX DISEASE
     Route: 048
     Dates: start: 2006, end: 2015
  23. VIMOVO [Suspect]
     Active Substance: ESOMEPRAZOLE MAGNESIUM\NAPROXEN
     Route: 048
     Dates: start: 2006, end: 2015
  24. CECLOR [Concomitant]
     Active Substance: CEFACLOR
  25. ERYC [Concomitant]
     Active Substance: ERYTHROMYCIN
  26. ASPIRIN. [Concomitant]
     Active Substance: ASPIRIN
  27. GAVISCON [Concomitant]
     Active Substance: ALUMINUM HYDROXIDE\MAGNESIUM CARBONATE
  28. PRILOSEC [Suspect]
     Active Substance: OMEPRAZOLE MAGNESIUM
     Indication: GASTROOESOPHAGEAL REFLUX DISEASE
     Route: 048
     Dates: start: 2011
  29. PROTONIX [Suspect]
     Active Substance: PANTOPRAZOLE SODIUM
     Route: 065
     Dates: start: 2006, end: 2015
  30. FAMOTIDINE. [Concomitant]
     Active Substance: FAMOTIDINE
  31. TETRACYCLINE [Concomitant]
     Active Substance: TETRACYCLINE
  32. BACTRIM [Concomitant]
     Active Substance: SULFAMETHOXAZOLE\TRIMETHOPRIM
  33. HYDROCHLOROTHIAZIDE. [Concomitant]
     Active Substance: HYDROCHLOROTHIAZIDE
  34. LIPITOR [Concomitant]
     Active Substance: ATORVASTATIN CALCIUM
  35. PRILOSEC OTC [Suspect]
     Active Substance: OMEPRAZOLE MAGNESIUM
     Route: 048
     Dates: start: 2006, end: 2015
  36. PREVACID 24 HR [Suspect]
     Active Substance: LANSOPRAZOLE
     Route: 065
     Dates: start: 2006, end: 2015
  37. DORYX [Concomitant]
     Active Substance: DOXYCYCLINE HYCLATE
  38. VANCOCIN [Concomitant]
     Active Substance: VANCOMYCIN HYDROCHLORIDE
  39. ACCUPRIL [Concomitant]
     Active Substance: QUINAPRIL HYDROCHLORIDE
  40. COZAAR [Concomitant]
     Active Substance: LOSARTAN POTASSIUM
  41. ACETAMINOPHEN. [Concomitant]
     Active Substance: ACETAMINOPHEN
  42. PLAVIX [Concomitant]
     Active Substance: CLOPIDOGREL BISULFATE
  43. AVELOX [Concomitant]
     Active Substance: MOXIFLOXACIN HYDROCHLORIDE
  44. LOTENSIN [Concomitant]
     Active Substance: BENAZEPRIL HYDROCHLORIDE
  45. PRINIVIL [Concomitant]
     Active Substance: LISINOPRIL
  46. VITAMIN D [Concomitant]
     Active Substance: VITAMIN D NOS
  47. PEPCID [Concomitant]
     Active Substance: FAMOTIDINE
     Dates: start: 2006
  48. RANITIDINE. [Concomitant]
     Active Substance: RANITIDINE
     Dosage: GENERIC
     Dates: start: 2015
  49. TUMS [Concomitant]
     Active Substance: CALCIUM CARBONATE
  50. NEXIUM [Suspect]
     Active Substance: ESOMEPRAZOLE MAGNESIUM
     Indication: GASTROOESOPHAGEAL REFLUX DISEASE
     Route: 048
     Dates: start: 2007
  51. PRILOSEC [Suspect]
     Active Substance: OMEPRAZOLE MAGNESIUM
     Indication: GASTROOESOPHAGEAL REFLUX DISEASE
     Route: 048
     Dates: start: 2006, end: 2015
  52. LORAZEPAM. [Concomitant]
     Active Substance: LORAZEPAM
  53. PREDNISONE. [Concomitant]
     Active Substance: PREDNISONE
  54. ZITHROMAX [Concomitant]
     Active Substance: AZITHROMYCIN DIHYDRATE
     Dates: start: 20070705
  55. LASIX [Concomitant]
     Active Substance: FUROSEMIDE
  56. DEXILANT [Suspect]
     Active Substance: DEXLANSOPRAZOLE
     Route: 065
     Dates: start: 2006, end: 2015

REACTIONS (9)
  - End stage renal disease [Not Recovered/Not Resolved]
  - Chronic kidney disease [Not Recovered/Not Resolved]
  - Proteinuria [Not Recovered/Not Resolved]
  - Renal atrophy [Not Recovered/Not Resolved]
  - Acute kidney injury [Unknown]
  - Fistula [Not Recovered/Not Resolved]
  - Tubulointerstitial nephritis [Not Recovered/Not Resolved]
  - Dyspepsia [Unknown]
  - Renal failure [Not Recovered/Not Resolved]

NARRATIVE: CASE EVENT DATE: 2004
